FAERS Safety Report 9408114 (Version 2)
Quarter: 2013Q3

REPORT INFORMATION
  Report Type: Spontaneous
  Country: JP (occurrence: None)
  Receive Date: 20130716
  Receipt Date: 20130805
  Transmission Date: 20140515
  Serious: Yes (Other)
  Sender: FDA-Public Use
  Company Number: 2013S1001430

PATIENT
  Age: 63 Year
  Sex: Female

DRUGS (6)
  1. LIVALO [Suspect]
     Indication: HYPERCHOLESTEROLAEMIA
     Route: 048
     Dates: start: 20130607, end: 20130614
  2. AMLODIPINE [Concomitant]
  3. LYRICA [Concomitant]
  4. LOXONIN [Concomitant]
  5. EPERISONE HYDROCHLORIDE [Concomitant]
  6. SELBEX [Concomitant]

REACTIONS (6)
  - Oedema [None]
  - Urticaria [None]
  - Hot flush [None]
  - Dyspnoea [None]
  - Blood pressure decreased [None]
  - Drug hypersensitivity [None]
